FAERS Safety Report 9197361 (Version 1)
Quarter: 2013Q1

REPORT INFORMATION
  Report Type: Spontaneous
  Country: US (occurrence: US)
  Receive Date: 20130328
  Receipt Date: 20130328
  Transmission Date: 20140127
  Serious: Yes (Hospitalization)
  Sender: FDA-Public Use
  Company Number: US-GLAXOSMITHKLINE-A0794194A

PATIENT
  Age: 58 Year
  Sex: Female
  Weight: 77.7 kg

DRUGS (1)
  1. AVANDIA [Suspect]
     Indication: DIABETES MELLITUS
     Route: 048

REACTIONS (5)
  - Myocardial ischaemia [Recovered/Resolved]
  - Coronary artery disease [Unknown]
  - Weight increased [Unknown]
  - Vision blurred [Unknown]
  - Swelling [Unknown]
